FAERS Safety Report 5004244-X (Version None)
Quarter: 2006Q2

REPORT INFORMATION
  Report Type: 
  Country: None (occurrence: None)
  Receive Date: 20060517
  Receipt Date: 20060510
  Transmission Date: 20061013
  Serious: Yes (Other)
  Sender: FDA-Public Use
  Company Number: PHEH2006US06169

PATIENT
  Age: 51 Year
  Sex: Female

DRUGS (4)
  1. TRILEPTAL [Suspect]
     Indication: DEPRESSION
     Dosage: UNK, QD
     Dates: start: 20051201, end: 20051201
  2. GEODON [Concomitant]
     Dates: start: 20051201
  3. WELLBUTRIN [Concomitant]
  4. NEURONTIN [Concomitant]

REACTIONS (1)
  - CONVULSION [None]
